FAERS Safety Report 9235054 (Version 2)
Quarter: 2013Q3

REPORT INFORMATION
  Report Type: Report from Study
  Country: BR (occurrence: BR)
  Receive Date: 20130416
  Receipt Date: 20130705
  Transmission Date: 20140515
  Serious: Yes (Death, Other)
  Sender: FDA-Public Use
  Company Number: BR-BAYER-201019631LA

PATIENT
  Age: 56 Year
  Sex: Male

DRUGS (2)
  1. NEXAVAR [Suspect]
     Indication: HEPATIC CANCER
     Dosage: 400 MG, BID
     Route: 048
     Dates: start: 20100401, end: 201006
  2. ANTINEOPLASTIC AGENTS [Concomitant]
     Indication: LIVER DISORDER

REACTIONS (8)
  - Hepatocellular carcinoma [Fatal]
  - Neoplasm progression [None]
  - Fatigue [Recovering/Resolving]
  - Alopecia [Recovering/Resolving]
  - Drug ineffective [None]
  - Eating disorder [None]
  - Constipation [None]
  - Asthenia [None]
